FAERS Safety Report 13851857 (Version 2)
Quarter: 2017Q3

REPORT INFORMATION
  Report Type: Report from Study
  Country: FR (occurrence: FR)
  Receive Date: 20170809
  Receipt Date: 20170814
  Transmission Date: 20171127
  Serious: Yes (Disabling, Other)
  Sender: FDA-Public Use
  Company Number: PHHY2017FR102820

PATIENT
  Age: 69 Year
  Sex: Male

DRUGS (3)
  1. COSENTYX [Suspect]
     Active Substance: SECUKINUMAB
     Dosage: 300 MG, QW (THEN EVERY 4 WEEKS)
     Route: 030
     Dates: start: 20170701
  2. COSENTYX [Suspect]
     Active Substance: SECUKINUMAB
     Indication: PSORIASIS
     Dosage: 300 MG, QW
     Route: 030
  3. ADENURIC [Concomitant]
     Active Substance: FEBUXOSTAT
     Indication: GOUT
     Dosage: 80 MG, UNK
     Route: 065

REACTIONS (9)
  - Fatigue [Recovering/Resolving]
  - Pain [Not Recovered/Not Resolved]
  - Arthralgia [Not Recovered/Not Resolved]
  - Intervertebral disc compression [Unknown]
  - Spinal pain [Recovering/Resolving]
  - Urinary tract infection enterococcal [Recovered/Resolved]
  - Concomitant disease aggravated [Recovered/Resolved]
  - Incorrect route of drug administration [Unknown]
  - Intervertebral disc protrusion [Unknown]

NARRATIVE: CASE EVENT DATE: 201707
